FAERS Safety Report 12357482 (Version 1)
Quarter: 2016Q2

REPORT INFORMATION
  Report Type: Spontaneous
  Country: CA (occurrence: CA)
  Receive Date: 20160511
  Receipt Date: 20160511
  Transmission Date: 20160815
  Serious: Yes (Disabling)
  Sender: FDA-Public Use
  Company Number: CA-FRI-1000084523

PATIENT
  Age: 53 Year
  Sex: Male

DRUGS (2)
  1. GALANTAMINE. [Concomitant]
     Active Substance: GALANTAMINE
     Indication: DEMENTIA ALZHEIMER^S TYPE
     Dosage: 25 MG ER
     Route: 048
     Dates: start: 2007
  2. MEMANTINE. [Suspect]
     Active Substance: MEMANTINE
     Indication: DEMENTIA ALZHEIMER^S TYPE
     Dosage: 20 MG
     Route: 048
     Dates: start: 200805

REACTIONS (3)
  - Physical disability [Not Recovered/Not Resolved]
  - Myoclonus [Unknown]
  - Hallucination [Unknown]

NARRATIVE: CASE EVENT DATE: 200911
